FAERS Safety Report 15726063 (Version 1)
Quarter: 2018Q4

REPORT INFORMATION
  Report Type: Spontaneous
  Country: US (occurrence: US)
  Receive Date: 20181216
  Receipt Date: 20181216
  Transmission Date: 20190205
  Serious: Yes (Other)
  Sender: FDA-Public Use
  Company Number: US-SUPERNUS PHARMACEUTICALS, INC.-2017SUP00359

PATIENT
  Age: 64 Year
  Sex: Female
  Weight: 60.32 kg

DRUGS (8)
  1. TROKENDI XR [Suspect]
     Active Substance: TOPIRAMATE
     Indication: PARTIAL SEIZURES
     Dosage: 100 MG, 1X/DAY
     Route: 048
     Dates: start: 20180214, end: 2018
  2. TROKENDI XR [Suspect]
     Active Substance: TOPIRAMATE
     Indication: PARTIAL SEIZURES
     Dosage: 200 MG, 1X/DAY
     Route: 048
     Dates: start: 20180214, end: 2018
  3. VIMPAT [Concomitant]
     Active Substance: LACOSAMIDE
     Indication: SEIZURE
  4. GABAPENTIN. [Concomitant]
     Active Substance: GABAPENTIN
  5. PAXIL [Concomitant]
     Active Substance: PAROXETINE HYDROCHLORIDE
     Indication: DEPRESSION
  6. GEODON [Concomitant]
     Active Substance: ZIPRASIDONE HYDROCHLORIDE\ZIPRASIDONE MESYLATE
     Indication: DEPRESSION
  7. TROKENDI XR [Suspect]
     Active Substance: TOPIRAMATE
     Indication: MIGRAINE
     Dosage: 100 MG, 1X/DAY
     Route: 048
     Dates: start: 201712, end: 201712
  8. TROKENDI XR [Suspect]
     Active Substance: TOPIRAMATE
     Indication: MIGRAINE
     Dosage: 200 MG, 1X/DAY
     Route: 048
     Dates: start: 201712, end: 201712

REACTIONS (4)
  - Headache [Unknown]
  - Dizziness [Unknown]
  - Vision blurred [Recovered/Resolved]
  - Performance status decreased [Unknown]

NARRATIVE: CASE EVENT DATE: 201712
